FAERS Safety Report 18837030 (Version 3)
Quarter: 2021Q2

REPORT INFORMATION
  Report Type: Report from Study
  Country: US (occurrence: US)
  Receive Date: 20210203
  Receipt Date: 20210422
  Transmission Date: 20210717
  Serious: Yes (Hospitalization, Other)
  Sender: FDA-Public Use
  Company Number: NVSC2021US019305

PATIENT
  Sex: Female

DRUGS (24)
  1. OXYGEN. [Concomitant]
     Active Substance: OXYGEN
     Indication: PRODUCT USED FOR UNKNOWN INDICATION
     Dosage: UNK TAKE 30 ML (2 L CONTINUOUS INCREASED TO 4 L WITH AMBULATION)
     Route: 065
  2. PANTOPRAZOLE [Concomitant]
     Active Substance: PANTOPRAZOLE
     Indication: PRODUCT USED FOR UNKNOWN INDICATION
     Dosage: 1 DF, BID (BEFORE BREACKFAST AND DINNER, 180 TABLETS)
     Route: 048
  3. POTASSIUM CHLORIDE. [Concomitant]
     Active Substance: POTASSIUM CHLORIDE
     Indication: PRODUCT USED FOR UNKNOWN INDICATION
     Dosage: 1 DF, QD
     Route: 048
  4. PROMACTA [Suspect]
     Active Substance: ELTROMBOPAG OLAMINE
     Indication: IMMUNE THROMBOCYTOPENIA
     Dosage: 1 DF, QD (TOTAL 30 TABLET, TAKEN ON AN EMPTY STOMACH 1 HR BEFORE AND 2 HRS AFTER MEAL AND
     Route: 048
  5. ACETAMINOPHEN. [Concomitant]
     Active Substance: ACETAMINOPHEN
     Indication: PAIN
     Dosage: 1000 MG (TAKES 1 TABLET AT BEDTIME AS NEEDED)
     Route: 048
  6. BENZONATATE. [Concomitant]
     Active Substance: BENZONATATE
     Indication: COUGH
     Dosage: 1 DF, TID (60 CAPSULES)
     Route: 048
  7. VITAMIN D3 [Concomitant]
     Active Substance: CHOLECALCIFEROL
     Indication: PRODUCT USED FOR UNKNOWN INDICATION
     Dosage: UNK, QD (2000 UNITS)
     Route: 048
  8. MONTELUKAST [Concomitant]
     Active Substance: MONTELUKAST SODIUM
     Indication: PRODUCT USED FOR UNKNOWN INDICATION
     Dosage: 1 DF (AT BEDTIME, 90 TABLETS)
     Route: 048
  9. PREDNISONE. [Concomitant]
     Active Substance: PREDNISONE
     Indication: PRODUCT USED FOR UNKNOWN INDICATION
     Dosage: 1 DF, QD (30 TABLETS)
     Route: 048
  10. TRAMADOL. [Concomitant]
     Active Substance: TRAMADOL
     Indication: PAIN
     Dosage: 1 DF, TID (90 TABLETS)
     Route: 048
  11. FLUTICASONE PROPIONATE. [Concomitant]
     Active Substance: FLUTICASONE PROPIONATE
     Indication: PRODUCT USED FOR UNKNOWN INDICATION
     Dosage: 2 DF, BID (2 SPRAY IN EACH NOSTRILS)
     Route: 065
  12. TORSEMIDE. [Concomitant]
     Active Substance: TORSEMIDE
     Indication: PRODUCT USED FOR UNKNOWN INDICATION
     Dosage: 0.5 DF, QD (90 TABLETS, PATIENT TAKING DIFFERENTLY: 40 MG BY MOUTH DAILY 0.5?1 TABLET PRN)
     Route: 048
  13. MAALOX ANTACID [Concomitant]
     Active Substance: ALUMINUM HYDROXIDE\DIMETHICONE\MAGNESIUM HYDROXIDE
     Indication: DYSPEPSIA
  14. BREO ELLIPTA [Concomitant]
     Active Substance: FLUTICASONE FUROATE\VILANTEROL TRIFENATATE
     Indication: PRODUCT USED FOR UNKNOWN INDICATION
     Dosage: UNK, QD (INHALE 1 PUFF, 60 EACH)
     Route: 048
  15. MAALOX ANTACID [Concomitant]
     Active Substance: ALUMINUM HYDROXIDE\DIMETHICONE\MAGNESIUM HYDROXIDE
     Indication: MUSCLE SPASMS
     Dosage: 30 ML, Q4H (600 ML)
     Route: 048
  16. CHOLECALCIFEROL [Concomitant]
     Active Substance: CHOLECALCIFEROL
     Indication: PRODUCT USED FOR UNKNOWN INDICATION
     Dosage: UNK, QD (2000 UNITS)
     Route: 048
  17. CYANOCOBALAMIN. [Concomitant]
     Active Substance: CYANOCOBALAMIN
     Indication: PRODUCT USED FOR UNKNOWN INDICATION
     Dosage: 2 DF (EVERY MORNING, 1000?100 MCG?MG)
     Route: 048
  18. ALBUTEROL. [Concomitant]
     Active Substance: ALBUTEROL
     Indication: PRODUCT USED FOR UNKNOWN INDICATION
     Dosage: UNK (INHALE 2 PUFFS AS NEEDED)
     Route: 048
  19. MAALOX ANTACID [Concomitant]
     Active Substance: ALUMINUM HYDROXIDE\DIMETHICONE\MAGNESIUM HYDROXIDE
     Indication: DYSPEPSIA
  20. GABAPENTIN. [Concomitant]
     Active Substance: GABAPENTIN
     Indication: PRODUCT USED FOR UNKNOWN INDICATION
     Dosage: 1 DF, TID (90 CAPSULE)
     Route: 048
     Dates: start: 20180812
  21. ISOSORBIDE MONONITRATE. [Concomitant]
     Active Substance: ISOSORBIDE MONONITRATE
     Indication: PRODUCT USED FOR UNKNOWN INDICATION
     Dosage: 1 DF, QD
     Route: 048
  22. METOPROLOL SUCCINATE. [Concomitant]
     Active Substance: METOPROLOL SUCCINATE
     Indication: PRODUCT USED FOR UNKNOWN INDICATION
     Dosage: 2 DF (EVERY MORNING, 180 TABLETS)
     Route: 048
  23. CENTRUM [Concomitant]
     Active Substance: VITAMINS
     Indication: PRODUCT USED FOR UNKNOWN INDICATION
     Dosage: 1 DF, QD (EVERY MORNING)
     Route: 048
  24. CALCIUM CARBONATE. [Concomitant]
     Active Substance: CALCIUM CARBONATE
     Indication: PRODUCT USED FOR UNKNOWN INDICATION
     Dosage: 1 DF, BID
     Route: 048

REACTIONS (47)
  - Pollakiuria [Unknown]
  - Blood potassium decreased [Unknown]
  - Productive cough [Unknown]
  - Chronic left ventricular failure [Unknown]
  - Osteoarthritis [Unknown]
  - Immune thrombocytopenia [Unknown]
  - COVID-19 [Unknown]
  - Pneumonia [Unknown]
  - Haematochezia [Unknown]
  - Chronic kidney disease [Unknown]
  - Memory impairment [Unknown]
  - Illness [Unknown]
  - Cardiovascular disorder [Unknown]
  - Glomerular filtration rate [Unknown]
  - Acquired oesophageal web [Unknown]
  - Anaemia [Unknown]
  - Diarrhoea [Unknown]
  - Myalgia [Unknown]
  - Headache [Unknown]
  - Asthma [Unknown]
  - Dyspnoea [Unknown]
  - Haemorrhage [Unknown]
  - Hypoxia [Unknown]
  - Obesity [Unknown]
  - Dizziness [Unknown]
  - Arthralgia [Unknown]
  - Abdominal pain [Unknown]
  - Heart rate irregular [Unknown]
  - Pulmonary sarcoidosis [Unknown]
  - Cataract nuclear [Unknown]
  - Liver function test increased [Recovered/Resolved]
  - Nausea [Unknown]
  - Asthenia [Unknown]
  - Contusion [Unknown]
  - Sinus congestion [Unknown]
  - Muscular weakness [Unknown]
  - Joint stiffness [Unknown]
  - Monoclonal gammopathy [Unknown]
  - Osteoporosis [Unknown]
  - Fatigue [Unknown]
  - Atrial fibrillation [Unknown]
  - Chronic respiratory failure [Unknown]
  - Large intestine polyp [Unknown]
  - Vitiligo [Unknown]
  - Chest pain [Unknown]
  - Back pain [Unknown]
  - Hypercholesterolaemia [Unknown]
